FAERS Safety Report 17434707 (Version 3)
Quarter: 2020Q3

REPORT INFORMATION
  Report Type: Spontaneous
  Country: SE (occurrence: SE)
  Receive Date: 20200219
  Receipt Date: 20200917
  Transmission Date: 20201102
  Serious: Yes (Other)
  Sender: FDA-Public Use
  Company Number: ES-MYLANLABS-2020M1016724

PATIENT
  Age: 59 Year
  Sex: Female

DRUGS (13)
  1. SALURES [Concomitant]
     Active Substance: BENDROFLUMETHIAZIDE
     Dosage: 5 MILLIGRAM, QD (5 MG, 1 TABLET IN THE MORNING)
     Route: 048
  2. METFORMIN [Suspect]
     Active Substance: METFORMIN HYDROCHLORIDE
     Indication: PRODUCT USED FOR UNKNOWN INDICATION
     Dosage: 1000 MILLIGRAM, QD (500 MG 1 TABLET IN THE MORNING AND EVENING)
     Route: 048
  3. METFORMIN [Suspect]
     Active Substance: METFORMIN HYDROCHLORIDE
     Dosage: 2 DOSAGE FORM, QD(1 TABLET IN THE MORNING AND 1 TABLET IN THE EVENING )
     Route: 048
  4. RAMIPRIL. [Concomitant]
     Active Substance: RAMIPRIL
     Dosage: 1 DOSAGE FORM, QD(1 TABLET IN THE MORNING)
     Route: 048
  5. SIMVASTATIN. [Concomitant]
     Active Substance: SIMVASTATIN
     Dosage: 40 MILLIGRAM, QD (40 MG, 1 TABLET IN THE EVENING)
     Route: 048
  6. MINIDIAB [Concomitant]
     Active Substance: GLIPIZIDE
     Dosage: 5 MILLIGRAM, QD (5 MG, 1 TABLET IN THE MORNING)
     Route: 048
  7. JANUVIA [Suspect]
     Active Substance: SITAGLIPTIN PHOSPHATE
     Indication: DIABETIC COMPLICATION
  8. SALURES [Concomitant]
     Active Substance: BENDROFLUMETHIAZIDE
     Dosage: 1 DOSAGE FORM, QD(1 TABLET IN THE MORNING)
     Route: 048
  9. MINIDIAB [Concomitant]
     Active Substance: GLIPIZIDE
     Dosage: 1 DOSAGE FORM, QD(1 TABLET IN THE MORNING )
     Route: 048
  10. JANUVIA [Suspect]
     Active Substance: SITAGLIPTIN PHOSPHATE
     Indication: DIABETES MELLITUS
     Dosage: 100 MILLIGRAM, QD (100 MG, ONCE DAILY)
     Route: 048
     Dates: start: 201508, end: 20191104
  11. RAMIPRIL. [Concomitant]
     Active Substance: RAMIPRIL
     Dosage: 10 MILLIGRAM, QD (10 MG, 1 TABLET IN THE MORNING)
     Route: 048
  12. SIMVASTATIN. [Concomitant]
     Active Substance: SIMVASTATIN
     Dosage: 1 DOSAGE FORM, QD(1 TABLET IN THE EVENING)
     Route: 048
  13. JANUVIA [Suspect]
     Active Substance: SITAGLIPTIN PHOSPHATE
     Indication: TYPE 2 DIABETES MELLITUS
     Dosage: UNK

REACTIONS (3)
  - Pancreatitis [Unknown]
  - Fatigue [Unknown]
  - Pancreatitis haemorrhagic [Recovering/Resolving]

NARRATIVE: CASE EVENT DATE: 2018
